FAERS Safety Report 10691459 (Version 7)
Quarter: 2018Q3

REPORT INFORMATION
  Report Type: Spontaneous
  Country: GB (occurrence: GB)
  Receive Date: 20150105
  Receipt Date: 20180822
  Transmission Date: 20181010
  Serious: Yes (Other)
  Sender: FDA-Public Use
  Company Number: GB-FRI-1000020575

PATIENT
  Age: 24 Year
  Sex: Male
  Weight: 88.9 kg

DRUGS (7)
  1. CITALOPRAM HYDROBROMIDE ? BP [Suspect]
     Active Substance: CITALOPRAM HYDROBROMIDE
     Dosage: 20 MG, QD
     Route: 065
     Dates: start: 200711, end: 200812
  2. LORAZEPAM. [Concomitant]
     Active Substance: LORAZEPAM
     Indication: PRESYNCOPE
     Dosage: 1.5 MG, QD
     Route: 048
     Dates: start: 20100430
  3. LORAZEPAM. [Concomitant]
     Active Substance: LORAZEPAM
     Indication: PRESYNCOPE
  4. CITALOPRAM HYDROBROMIDE ? BP [Suspect]
     Active Substance: CITALOPRAM HYDROBROMIDE
     Indication: OBSESSIVE-COMPULSIVE DISORDER
     Dosage: 40 MG, QD
     Route: 065
     Dates: start: 200812
  5. LORAZEPAM. [Concomitant]
     Active Substance: LORAZEPAM
     Indication: DIZZINESS
     Dosage: 3 MG, QD
     Route: 048
     Dates: start: 20070622, end: 20100430
  6. LORAZEPAM. [Concomitant]
     Active Substance: LORAZEPAM
     Indication: PRESYNCOPE
     Dosage: 3 MG, QD
     Route: 048
     Dates: start: 20100430
  7. LORAZEPAM. [Concomitant]
     Active Substance: LORAZEPAM
     Indication: ANXIETY

REACTIONS (8)
  - Premature ejaculation [Not Recovered/Not Resolved]
  - Depression [Not Recovered/Not Resolved]
  - Headache [Not Recovered/Not Resolved]
  - Orgasmic sensation decreased [Not Recovered/Not Resolved]
  - Sexual dysfunction [Not Recovered/Not Resolved]
  - Off label use [Unknown]
  - Depressed mood [Not Recovered/Not Resolved]
  - Libido decreased [Not Recovered/Not Resolved]

NARRATIVE: CASE EVENT DATE: 200812
